FAERS Safety Report 5103736-2 (Version None)
Quarter: 2006Q3

REPORT INFORMATION
  Report Type: 
  Country: None (occurrence: None)
  Receive Date: 20060913
  Receipt Date: 20060605
  Transmission Date: 20061208
  Serious: Yes (Hospitalization)
  Sender: FDA-Public Use
  Company Number: PHBS2006IT08632

PATIENT
  Sex: Female

DRUGS (1)
  1. CAFERGOT [Suspect]
     Route: 054

REACTIONS (4)
  - DRUG ABUSER [None]
  - NAUSEA [None]
  - PARAESTHESIA [None]
  - VOMITING [None]
